FAERS Safety Report 14968237 (Version 1)
Quarter: 2018Q2

REPORT INFORMATION
  Report Type: Spontaneous
  Country: US (occurrence: US)
  Receive Date: 20180511
  Receipt Date: 20180511
  Transmission Date: 20180711
  Serious: Yes (Disabling)
  Sender: FDA-Public Use
  Company Number: None

PATIENT
  Age: 38 Year
  Sex: Female
  Weight: 74.25 kg

DRUGS (1)
  1. SORILUX [Suspect]
     Active Substance: CALCIPOTRIENE
     Indication: PSORIASIS
     Dosage: ?          QUANTITY:60 FOAM;?
     Route: 061
     Dates: start: 20180418, end: 20180419

REACTIONS (3)
  - Wound [None]
  - Blister [None]
  - Psoriasis [None]

NARRATIVE: CASE EVENT DATE: 20180418
